FAERS Safety Report 26116076 (Version 1)
Quarter: 2025Q4

REPORT INFORMATION
  Report Type: Spontaneous
  Country: EU (occurrence: EU)
  Receive Date: 20251203
  Receipt Date: 20251203
  Transmission Date: 20260117
  Serious: Yes (Hospitalization, Other)
  Sender: AUROBINDO
  Company Number: EU-AFSSAPS-AVTO2025000201

PATIENT
  Age: 42 Year
  Sex: Male

DRUGS (1)
  1. PREGABALIN [Suspect]
     Active Substance: PREGABALIN
     Indication: Product used for unknown indication
     Dosage: 400 MILLIGRAM
     Dates: start: 20190522, end: 20250906

REACTIONS (4)
  - Myoclonus [Recovered/Resolved]
  - Drug dependence [Not Recovered/Not Resolved]
  - Substance abuse [Recovered/Resolved]
  - Intentional product misuse [Recovered/Resolved]

NARRATIVE: CASE EVENT DATE: 20110503
